FAERS Safety Report 6263669-5 (Version None)
Quarter: 2009Q3

REPORT INFORMATION
  Report Type: 
  Country: None (occurrence: None)
  Receive Date: 20090708
  Receipt Date: 20090708
  Transmission Date: 20100115
  Serious: No
  Sender: FDA-Public Use
  Company Number: None

PATIENT
  Sex: Female
  Weight: 68.2 kg

DRUGS (3)
  1. ZICAM NASAL GEL PUMP MATRIXX INITIATIVES, INC. [Suspect]
     Indication: NASOPHARYNGITIS
     Dates: start: 20050103, end: 20050110
  2. AMPICILLIN [Concomitant]
  3. AMOXICILLIN [Concomitant]

REACTIONS (2)
  - ANOSMIA [None]
  - HYPOGEUSIA [None]
